FAERS Safety Report 17393450 (Version 2)
Quarter: 2020Q4

REPORT INFORMATION
  Report Type: Other
  Country: ES (occurrence: ES)
  Receive Date: 20200208
  Receipt Date: 20201202
  Transmission Date: 20210113
  Serious: Yes (Other)
  Sender: FDA-Public Use
  Company Number: ES-VISTA PHARMACEUTICALS INC.-2079998

PATIENT
  Age: 70 Year
  Sex: Male

DRUGS (2)
  1. SERENOA REPENS (PERMIXON) [Suspect]
     Active Substance: HERBALS\SAW PALMETTO
     Route: 065
  2. SULFAMETHOXAZOLE AND TRIMETHOPRIM [Suspect]
     Active Substance: SULFAMETHOXAZOLE\TRIMETHOPRIM
     Indication: URINARY TRACT INFECTION
     Route: 065

REACTIONS (2)
  - Toxic skin eruption [Recovering/Resolving]
  - Rash pruritic [Recovering/Resolving]
